FAERS Safety Report 4849501-2 (Version None)
Quarter: 2005Q4

REPORT INFORMATION
  Report Type: 
  Country: None (occurrence: None)
  Receive Date: 20051207
  Receipt Date: 20051128
  Transmission Date: 20060501
  Serious: Yes (Death)
  Sender: FDA-Public Use
  Company Number: 2005162622

PATIENT
  Age: 46 Year
  Sex: Female
  Weight: 67 kg

DRUGS (2)
  1. DEPO-PROVERA [Suspect]
     Indication: ILL-DEFINED DISORDER
     Dosage: (1ST INJECTION), INTRAMUSCULAR
     Route: 030
     Dates: start: 20050915, end: 20050915
  2. VENLAFAXINE HCL [Suspect]
     Indication: DEPRESSION
     Dosage: 150 MG (75 MG, TWICE DAILY), ORAL
     Route: 048
     Dates: start: 20041130, end: 20050930

REACTIONS (1)
  - GASTROINTESTINAL HAEMORRHAGE [None]
